FAERS Safety Report 18152067 (Version 1)
Quarter: 2020Q3

REPORT INFORMATION
  Report Type: Spontaneous
  Country: US (occurrence: US)
  Receive Date: 20200814
  Receipt Date: 20200814
  Transmission Date: 20201103
  Serious: Yes (Hospitalization, Other)
  Sender: FDA-Public Use
  Company Number: US-BAYER-2016-074336

PATIENT
  Age: 71 Year
  Sex: Female

DRUGS (3)
  1. XARELTO [Suspect]
     Active Substance: RIVAROXABAN
     Indication: PULMONARY EMBOLISM
     Dosage: 10?20 MG APPROXIMATELY
     Route: 048
     Dates: start: 201501, end: 201501
  2. XARELTO [Suspect]
     Active Substance: RIVAROXABAN
     Dosage: 10 MG, QD
     Route: 048
  3. BAYER LOW DOSE [Suspect]
     Active Substance: ASPIRIN
     Indication: PRODUCT USED FOR UNKNOWN INDICATION
     Dosage: 81 MG, QD
     Route: 065

REACTIONS (6)
  - Acute kidney injury [Unknown]
  - Vaginal haemorrhage [Not Recovered/Not Resolved]
  - Gastrointestinal haemorrhage [Unknown]
  - Rectal haemorrhage [Unknown]
  - Skin laceration [Unknown]
  - Genital haemorrhage [Unknown]

NARRATIVE: CASE EVENT DATE: 201501
